FAERS Safety Report 4564540-7 (Version None)
Quarter: 2005Q1

REPORT INFORMATION
  Report Type: 
  Country: None (occurrence: None)
  Receive Date: 20050126
  Receipt Date: 20050112
  Transmission Date: 20050727
  Serious: Yes (Hospitalization)
  Sender: FDA-Public Use
  Company Number: 6012580

PATIENT
  Age: 52 Year
  Sex: Male

DRUGS (5)
  1. LEVOTHYROXINE SODIUM [Suspect]
     Dosage: 75 MCG 1I N 1 D
     Route: 048
     Dates: start: 19930101
  2. DESMOPRESSIN ACETATE [Suspect]
     Dosage: 5 MCG (10 MCG 1 IN 2 D)
     Route: 042
     Dates: start: 19840101, end: 20041114
  3. LEGALON (TABLETS) (SILYMARIN) [Suspect]
     Dosage: 1 IN 2 D
     Route: 048
     Dates: end: 20041114
  4. FENOFIBRATE [Suspect]
     Route: 048
     Dates: end: 20041107
  5. XATRAL TABLETS (ALFUZOSIN) [Suspect]
     Route: 048

REACTIONS (3)
  - HYPONATRAEMIA [None]
  - OVERDOSE [None]
  - RHABDOMYOLYSIS [None]
